FAERS Safety Report 10176340 (Version 1)
Quarter: 2014Q2

REPORT INFORMATION
  Report Type: Spontaneous
  Country: US (occurrence: US)
  Receive Date: 20140516
  Receipt Date: 20140516
  Transmission Date: 20141212
  Serious: Yes (Other)
  Sender: FDA-Public Use
  Company Number: US-AMGEN-USASP2014034190

PATIENT
  Age: 67 Year
  Sex: Female

DRUGS (1)
  1. PROLIA [Suspect]
     Indication: OSTEOPOROSIS POSTMENOPAUSAL
     Dosage: 60 MG/ML, UNK
     Route: 058

REACTIONS (11)
  - Diabetic foot [Unknown]
  - Muscle spasms [Unknown]
  - Pain [Unknown]
  - Feeling abnormal [Unknown]
  - Dysstasia [Unknown]
  - Paraesthesia [Unknown]
  - Back pain [Unknown]
  - Arthralgia [Unknown]
  - Myalgia [Unknown]
  - Bone pain [Unknown]
  - Pain in extremity [Unknown]
